FAERS Safety Report 7546922-4 (Version None)
Quarter: 2011Q2

REPORT INFORMATION
  Report Type: 
  Country: None (occurrence: None)
  Receive Date: 20110524
  Receipt Date: 20110217
  Transmission Date: 20111010
  Serious: No
  Sender: FDA-Public Use
  Company Number: 027765

PATIENT
  Sex: Female

DRUGS (1)
  1. CIMZIA [Suspect]
     Indication: CROHN'S DISEASE
     Dosage: (PFS SUBCUTANEOUS)
     Route: 058
     Dates: start: 20110215

REACTIONS (3)
  - MALAISE [None]
  - NASOPHARYNGITIS [None]
  - FATIGUE [None]
